FAERS Safety Report 6106854-5 (Version None)
Quarter: 2009Q1

REPORT INFORMATION
  Report Type: 
  Country: None (occurrence: None)
  Receive Date: 20090304
  Receipt Date: 20090220
  Transmission Date: 20090719
  Serious: Yes (Other)
  Sender: FDA-Public Use
  Company Number: 2009AL001100

PATIENT
  Age: 50 Year
  Sex: Male

DRUGS (15)
  1. VENLAFAXINE HYDROCHLORIDE [Suspect]
     Indication: DEPRESSION
     Dosage: 225 MG; PO
     Route: 048
     Dates: start: 20080222
  2. ACETYLSALICYLIC ACID [Concomitant]
  3. QUETIAPINE FUMARATE [Concomitant]
  4. CARBAMAZEPINE [Concomitant]
  5. DIPYRIDAMOLE [Concomitant]
  6. DIAZEPAM [Concomitant]
  7. ACETAMINOPHEN W/ CODEINE [Concomitant]
  8. NOVOLOG MIX 70/30 [Concomitant]
  9. PERINDOPRIL ERBUMINE [Concomitant]
  10. BEZALIP [Concomitant]
  11. BISOPROLOL [Concomitant]
  12. ATORVASTATIN [Concomitant]
  13. ISOSORBIDE MONONITRATE [Concomitant]
  14. OMEPRAZOLE [Concomitant]
  15. OMACOR [Concomitant]

REACTIONS (2)
  - BLOOD CHOLESTEROL INCREASED [None]
  - HYPERTRIGLYCERIDAEMIA [None]
